FAERS Safety Report 8479949-9 (Version None)
Quarter: 2012Q2

REPORT INFORMATION
  Report Type: 
  Country: None (occurrence: None)
  Receive Date: 20120629
  Receipt Date: 20120620
  Transmission Date: 20120825
  Serious: Yes (Hospitalization)
  Sender: FDA-Public Use
  Company Number: NL-MEDIMMUNE-MEDI-0012205

PATIENT
  Age: 3 Month
  Sex: Female

DRUGS (2)
  1. SYNAGIS [Suspect]
     Indication: ANTIVIRAL PROPHYLAXIS
     Route: 030
     Dates: start: 20101211, end: 20101211
  2. SYNAGIS [Suspect]
     Route: 030

REACTIONS (2)
  - DYSPNOEA [None]
  - NASOPHARYNGITIS [None]
